FAERS Safety Report 20054845 (Version 1)
Quarter: 2021Q4

REPORT INFORMATION
  Report Type: Spontaneous
  Country: US (occurrence: None)
  Receive Date: 20211110
  Receipt Date: 20211110
  Transmission Date: 20220304
  Serious: No
  Sender: FDA-Public Use
  Company Number: None

PATIENT
  Age: 39 Year
  Sex: Female
  Weight: 58.5 kg

DRUGS (6)
  1. EYSUVIS [Suspect]
     Active Substance: LOTEPREDNOL ETABONATE
     Indication: Dry eye
     Dosage: OTHER QUANTITY : 1 DROP(S);?FREQUENCY : 4 TIMES A DAY;?
     Route: 047
     Dates: start: 20211031, end: 20211106
  2. RESTASIS [Concomitant]
     Active Substance: CYCLOSPORINE
  3. HERBALS\TURMERIC [Concomitant]
     Active Substance: HERBALS\TURMERIC
  4. FISH OIL [Concomitant]
     Active Substance: FISH OIL
  5. COLLAGEN [Concomitant]
     Active Substance: COLLAGEN
  6. BIOTIN [Concomitant]
     Active Substance: BIOTIN

REACTIONS (3)
  - Accidental exposure to product [None]
  - Chemical burn of skin [None]
  - Scar [None]

NARRATIVE: CASE EVENT DATE: 20211106
